FAERS Safety Report 8014604-0 (Version None)
Quarter: 2011Q4

REPORT INFORMATION
  Report Type: 
  Country: None (occurrence: None)
  Receive Date: 20111229
  Receipt Date: 20111214
  Transmission Date: 20120403
  Serious: Yes (Hospitalization, Other)
  Sender: FDA-Public Use
  Company Number: US-ABBOTT-11P-163-0887051-00

PATIENT
  Sex: Female
  Weight: 79.45 kg

DRUGS (8)
  1. ZOLOFT [Concomitant]
     Indication: PRODUCT USED FOR UNKNOWN INDICATION
  2. DEPAKOTE [Suspect]
     Indication: EPILEPSY
     Dates: start: 19990101, end: 19990101
  3. PREDNISONE TAB [Suspect]
     Indication: LIVER TRANSPLANT
  4. DEPAKOTE [Suspect]
     Indication: CONVULSION
  5. LAMICTAL [Suspect]
     Indication: CONVULSION
  6. NEURONTIN [Suspect]
     Indication: CONVULSION
  7. LAMICTAL [Suspect]
     Indication: EPILEPSY
     Dates: start: 19990101, end: 19990101
  8. IMMUNOSUPPRESSANTS [Suspect]
     Indication: LIVER TRANSPLANT

REACTIONS (14)
  - GRAND MAL CONVULSION [None]
  - ARTHRALGIA [None]
  - ANAESTHETIC COMPLICATION [None]
  - RASH [None]
  - PETIT MAL EPILEPSY [None]
  - HYPOAESTHESIA [None]
  - JAUNDICE [None]
  - LIVER INJURY [None]
  - HEPATIC FAILURE [None]
  - GAIT DISTURBANCE [None]
  - RENAL FAILURE [None]
  - CONVULSION [None]
  - ARTHROPATHY [None]
  - LIVER TRANSPLANT REJECTION [None]
